FAERS Safety Report 15858799 (Version 6)
Quarter: 2021Q2

REPORT INFORMATION
  Report Type: Spontaneous
  Country: CA (occurrence: CA)
  Receive Date: 20190123
  Receipt Date: 20210630
  Transmission Date: 20210716
  Serious: Yes (Other)
  Sender: FDA-Public Use
  Company Number: CA-EISAI MEDICAL RESEARCH-EC-2017-032342

PATIENT
  Age: 49 Year
  Sex: Female

DRUGS (12)
  1. APO?LETROZOLE [Suspect]
     Active Substance: LETROZOLE
     Dosage: DOSE AND FREQUENCY UNKNOWN
     Route: 065
  2. APO?LETROZOLE [Suspect]
     Active Substance: LETROZOLE
     Indication: BREAST CANCER
     Dosage: 3 DOSAGE FORMS, FREQUENCY UNKNOWN
     Route: 065
  3. PACLITAXEL. [Suspect]
     Active Substance: PACLITAXEL
     Indication: BREAST CANCER
     Dosage: DOSE AND FREQUENCY UNKNOWN
     Route: 042
  4. XELODA [Suspect]
     Active Substance: CAPECITABINE
     Indication: BREAST CANCER
     Dosage: DOSE AND FREQUENCY UNKNOWN
     Route: 048
  5. CLODRONATE DISODIUM [Suspect]
     Active Substance: CLODRONATE DISODIUM
     Indication: BREAST CANCER
     Dosage: DOSE AND FREQUENCY UNKNOWN
     Route: 065
  6. IBRANCE [Suspect]
     Active Substance: PALBOCICLIB
     Indication: BREAST CANCER
     Dosage: DOSE AND FREQUENCY UNKNOWN
     Route: 065
  7. ERIBULIN [Suspect]
     Active Substance: ERIBULIN
     Indication: BREAST CANCER
     Dosage: DOSE UNKNOWN
     Route: 041
     Dates: start: 201605, end: 201611
  8. FULVESTRANT. [Suspect]
     Active Substance: FULVESTRANT
     Dosage: DOSE AND FREQUENCY UNKNOWN
     Route: 005
  9. APO?LETROZOLE [Suspect]
     Active Substance: LETROZOLE
     Dosage: DOSE AND FREQUENCY UNKNOWN
     Route: 065
  10. FULVESTRANT. [Suspect]
     Active Substance: FULVESTRANT
     Indication: BREAST CANCER
     Dosage: DOSE AND FREQUENCY UNKNOWN
     Route: 030
  11. TAMOXIFEN [Suspect]
     Active Substance: TAMOXIFEN
     Indication: BREAST CANCER
     Dosage: DOSE AND FREQUENCY UNKNOWN
     Route: 048
  12. CLODRONIC ACID [Suspect]
     Active Substance: CLODRONIC ACID
     Indication: BREAST CANCER
     Dosage: DOSE AND FREQUENCY UNKNOWN
     Route: 065

REACTIONS (7)
  - Headache [Recovering/Resolving]
  - Asthenia [Recovering/Resolving]
  - Immunosuppression [Recovering/Resolving]
  - Protein total increased [Recovering/Resolving]
  - Platelet count decreased [Recovering/Resolving]
  - Malignant neoplasm progression [Recovering/Resolving]
  - White blood cell count increased [Recovering/Resolving]

NARRATIVE: CASE EVENT DATE: 201611
